FAERS Safety Report 13349416 (Version 1)
Quarter: 2017Q1

REPORT INFORMATION
  Report Type: Spontaneous
  Country: SG (occurrence: SG)
  Receive Date: 20170320
  Receipt Date: 20170320
  Transmission Date: 20170428
  Serious: Yes (Hospitalization, Other)
  Sender: FDA-Public Use
  Company Number: SG-LUPIN PHARMACEUTICALS INC.-2017-01161

PATIENT
  Age: 18 Year
  Sex: Male

DRUGS (3)
  1. SULPHUR [Concomitant]
     Active Substance: SULFUR
     Indication: ACNE
     Dosage: UNKNOWN
     Route: 061
  2. RESORCINOL [Concomitant]
     Active Substance: RESORCINOL
     Indication: ACNE
     Dosage: 1 DF, BID
     Route: 061
  3. DOXYCYCLINE. [Suspect]
     Active Substance: DOXYCYCLINE
     Indication: ACNE
     Dosage: UNKNOWN
     Route: 048

REACTIONS (1)
  - Acne fulminans [Recovering/Resolving]
